FAERS Safety Report 8789739 (Version 1)
Quarter: 2012Q4

REPORT INFORMATION
  Report Type: Spontaneous
  Country: US (occurrence: None)
  Receive Date: 20120905
  Receipt Date: 20120905
  Transmission Date: 20130627
  Serious: Yes (Death, Other)
  Sender: FDA-Public Use
  Company Number: TPA2012A06217

PATIENT
  Age: 76 Year
  Sex: Female

DRUGS (4)
  1. ACTOS (PIOGLITAZONE HYDROCHLORIDE) [Suspect]
     Indication: TYPE II DIABETES MELLITUS
     Dates: start: 200211, end: 201002
  2. METFORMIN [Concomitant]
  3. GLUCOPHAGE (METFORMIN) [Concomitant]
  4. STARLIX (NATEGLINIDE) [Concomitant]

REACTIONS (2)
  - Bladder cancer [None]
  - Urinary tract infection [None]
